FAERS Safety Report 12458245 (Version 2)
Quarter: 2016Q3

REPORT INFORMATION
  Report Type: Report from Study
  Country: US (occurrence: US)
  Receive Date: 20160613
  Receipt Date: 20160811
  Transmission Date: 20161109
  Serious: Yes (Other)
  Sender: FDA-Public Use
  Company Number: US-AMGEN-USASL2016072660

PATIENT
  Age: 50 Year
  Sex: Female

DRUGS (1)
  1. ENBREL [Suspect]
     Active Substance: ETANERCEPT
     Indication: PSORIATIC ARTHROPATHY
     Dosage: UNK, QWK
     Route: 065
     Dates: start: 20160511

REACTIONS (7)
  - Arthralgia [Not Recovered/Not Resolved]
  - Injection site pain [Unknown]
  - Arthropathy [Unknown]
  - Injection site bruising [Recovered/Resolved]
  - Injection site erythema [Recovered/Resolved]
  - Injection site discomfort [Unknown]
  - Mobility decreased [Not Recovered/Not Resolved]

NARRATIVE: CASE EVENT DATE: 2016
